FAERS Safety Report 8055083-7 (Version None)
Quarter: 2011Q4

REPORT INFORMATION
  Report Type: 
  Country: None (occurrence: None)
  Receive Date: 20111216
  Receipt Date: 20110502
  Transmission Date: 20120403
  Serious: Yes (Other)
  Sender: FDA-Public Use
  Company Number: 279398USA

PATIENT
  Age: 42 Year
  Sex: Female
  Weight: 81.6475 kg

DRUGS (1)
  1. PARAGARD T 380A [Suspect]
     Indication: CONTRACEPTION
     Dosage: I.U.
     Dates: start: 20110110, end: 20110326

REACTIONS (8)
  - VAGINAL HAEMORRHAGE [None]
  - DEVICE DISLOCATION [None]
  - ASTHENIA [None]
  - FATIGUE [None]
  - ABDOMINAL PAIN [None]
  - ANXIETY [None]
  - VAGINAL DISCHARGE [None]
  - HYPOMENORRHOEA [None]
